FAERS Safety Report 9397237 (Version 1)
Quarter: 2013Q3

REPORT INFORMATION
  Report Type: Spontaneous
  Country: CA (occurrence: CA)
  Receive Date: 20130712
  Receipt Date: 20130712
  Transmission Date: 20140515
  Serious: Yes (Hospitalization)
  Sender: FDA-Public Use
  Company Number: CA-ROCHE-1246172

PATIENT
  Age: 55 Year
  Sex: Female

DRUGS (5)
  1. XELODA [Suspect]
     Indication: PRODUCT USED FOR UNKNOWN INDICATION
     Route: 065
  2. TYKERB [Suspect]
     Indication: PRODUCT USED FOR UNKNOWN INDICATION
     Route: 048
  3. CELEBREX [Concomitant]
     Route: 065
  4. COVERSYL [Concomitant]
     Route: 065
  5. PANTOPRAZOLE [Concomitant]
     Route: 065

REACTIONS (9)
  - Breast cancer metastatic [Not Recovered/Not Resolved]
  - Diarrhoea [Not Recovered/Not Resolved]
  - Immobile [Not Recovered/Not Resolved]
  - Metastases to central nervous system [Not Recovered/Not Resolved]
  - Neoplasm [Not Recovered/Not Resolved]
  - Onychomadesis [Not Recovered/Not Resolved]
  - Palmar-plantar erythrodysaesthesia syndrome [Not Recovered/Not Resolved]
  - Speech disorder [Not Recovered/Not Resolved]
  - Wound secretion [Not Recovered/Not Resolved]
